FAERS Safety Report 17774479 (Version 1)
Quarter: 2020Q2

REPORT INFORMATION
  Report Type: Spontaneous
  Country: TR (occurrence: TR)
  Receive Date: 20200513
  Receipt Date: 20200513
  Transmission Date: 20200714
  Serious: Yes (Hospitalization, Other)
  Sender: FDA-Public Use
  Company Number: TR-GLAXOSMITHKLINE-TR2020GSK078793

PATIENT
  Age: 31 Year
  Sex: Female

DRUGS (3)
  1. VALPROIC ACID. [Interacting]
     Active Substance: VALPROIC ACID
     Indication: EPILEPSY
     Dosage: 750 MG/D
  2. LAMOTRIGINE. [Interacting]
     Active Substance: LAMOTRIGINE
     Dosage: 25 MG/ DAY
  3. LAMOTRIGINE. [Suspect]
     Active Substance: LAMOTRIGINE
     Indication: EPILEPSY
     Dosage: 12.5 MG

REACTIONS (22)
  - Drug reaction with eosinophilia and systemic symptoms [Recovered/Resolved]
  - Face oedema [Recovered/Resolved]
  - Palatal disorder [Recovered/Resolved]
  - Leukocytosis [Recovered/Resolved]
  - Aspartate aminotransferase increased [Recovered/Resolved]
  - Neutrophilia [Recovered/Resolved]
  - Thyroid function test abnormal [Recovered/Resolved]
  - Rash maculo-papular [Recovered/Resolved]
  - Periorbital oedema [Recovered/Resolved]
  - Lymphopenia [Recovered/Resolved]
  - Oral disorder [Recovered/Resolved]
  - Rash [Recovered/Resolved]
  - Purpura [Recovered/Resolved]
  - Tonsillar erythema [Recovered/Resolved]
  - Lymphadenopathy [Recovered/Resolved]
  - Pyrexia [Recovered/Resolved]
  - Cheilitis [Recovered/Resolved]
  - Oral purpura [Recovered/Resolved]
  - Liver function test increased [Recovered/Resolved]
  - Fatigue [Recovered/Resolved]
  - Alanine aminotransferase increased [Recovered/Resolved]
  - Inhibitory drug interaction [Unknown]
